FAERS Safety Report 6033047-2 (Version None)
Quarter: 2009Q1

REPORT INFORMATION
  Report Type: 
  Country: None (occurrence: None)
  Receive Date: 20090109
  Receipt Date: 20081229
  Transmission Date: 20090719
  Serious: Yes (Other)
  Sender: FDA-Public Use
  Company Number: ES-ROCHE-605225

PATIENT
  Age: 45 Year
  Sex: Female

DRUGS (11)
  1. SAQUINAVIR [Interacting]
     Route: 065
  2. ATAZANAVIR [Interacting]
     Route: 065
  3. ATAZANAVIR [Interacting]
     Route: 065
  4. ATAZANAVIR [Interacting]
     Route: 065
  5. RITONAVIR [Interacting]
     Route: 065
  6. RITONAVIR [Interacting]
     Route: 065
  7. CAT'S CLAW [Interacting]
     Indication: DRUG USE FOR UNKNOWN INDICATION
     Route: 065
  8. ABACAVIR [Suspect]
     Route: 065
  9. LAMIVUDINE [Suspect]
     Route: 065
  10. SILDENAFIL CITRATE [Concomitant]
     Indication: PULMONARY HYPERTENSION
  11. EPOPROSTENOL [Concomitant]
     Indication: PULMONARY HYPERTENSION
     Dosage: DOSE: 2 NG/KG/ MINUTE

REACTIONS (2)
  - DRUG INTERACTION [None]
  - DRUG LEVEL INCREASED [None]
